FAERS Safety Report 9642258 (Version 2)
Quarter: 2013Q4

REPORT INFORMATION
  Report Type: Report from Study
  Country: JP (occurrence: JP)
  Receive Date: 20131024
  Receipt Date: 20131104
  Transmission Date: 20140711
  Serious: Yes (Death)
  Sender: FDA-Public Use
  Company Number: JP-MERCK-1310JPN009043

PATIENT
  Age: 81 Year
  Sex: Female
  Weight: 44 kg

DRUGS (13)
  1. CANCIDAS FOR INTRAVENOUS DRIP INFUSION 50MG [Suspect]
     Indication: BRONCHOPULMONARY ASPERGILLOSIS
     Dosage: 50 MG, QD
     Route: 041
     Dates: start: 20130705, end: 20130713
  2. CANCIDAS FOR INTRAVENOUS DRIP INFUSION 70MG [Suspect]
     Indication: BRONCHOPULMONARY ASPERGILLOSIS
     Dosage: 70 MG, QD
     Route: 041
     Dates: start: 20130704, end: 20130704
  3. CRAVIT [Concomitant]
     Indication: INTERSTITIAL LUNG DISEASE
     Dosage: 500 MG, QD
     Route: 051
     Dates: start: 20130704, end: 20130711
  4. BENAMBAX [Concomitant]
     Indication: FUNGAL INFECTION
     Dosage: 175 MG, QD
     Route: 051
     Dates: start: 20130704, end: 20130713
  5. SOL MELCORT [Concomitant]
     Indication: INTERSTITIAL LUNG DISEASE
     Dosage: 500 MG, QD
     Route: 051
     Dates: start: 20130704, end: 20130706
  6. SOL MELCORT [Concomitant]
     Dosage: 125 MG, QD
     Route: 051
     Dates: start: 20130707, end: 20130708
  7. SOL MELCORT [Concomitant]
     Dosage: 80 MG, QD
     Route: 051
     Dates: start: 20130709, end: 20130713
  8. LASIX (FUROSEMIDE) [Concomitant]
     Indication: CARDIAC FAILURE
     Dosage: 20 MG, QD
     Route: 051
     Dates: start: 20130704, end: 20130713
  9. MEROPEN [Concomitant]
     Indication: INTERSTITIAL LUNG DISEASE
     Dosage: 500 MG, BID
     Route: 051
     Dates: start: 20130713, end: 20130713
  10. SOLYUGEN G [Concomitant]
     Indication: NUTRITIONAL SUPPLEMENTATION
     Dosage: 500 ML, QD
     Route: 051
     Dates: start: 20130704, end: 20130713
  11. VITAMEDIN INTRAVENOUS [Concomitant]
     Indication: NUTRITIONAL SUPPLEMENTATION
     Dosage: 1 DF, QD
     Route: 051
     Dates: start: 20130704, end: 20130713
  12. GASTER (FAMOTIDINE) [Concomitant]
     Indication: PROPHYLAXIS
     Dosage: 20 MG, QD
     Route: 051
     Dates: start: 20130704, end: 20130713
  13. BFLUID [Concomitant]
     Indication: NUTRITIONAL SUPPLEMENTATION
     Dosage: 500 ML, QD
     Route: 051
     Dates: start: 20130704, end: 20130713

REACTIONS (1)
  - Interstitial lung disease [Fatal]
